FAERS Safety Report 7935131-2 (Version None)
Quarter: 2011Q4

REPORT INFORMATION
  Report Type: 
  Country: None (occurrence: None)
  Receive Date: 20111117
  Receipt Date: 20111111
  Transmission Date: 20120403
  Serious: Yes (Death)
  Sender: FDA-Public Use
  Company Number: 2011001413

PATIENT
  Age: 56 Year
  Sex: Male

DRUGS (2)
  1. TARCEVA [Suspect]
     Indication: LUNG CARCINOMA CELL TYPE UNSPECIFIED STAGE 0
     Dosage: 100 MG, UID/QD, ORAL
     Route: 048
     Dates: start: 20110310
  2. CHEMO TREATMENT [Concomitant]

REACTIONS (3)
  - WHITE BLOOD CELL COUNT DECREASED [None]
  - CHEILITIS [None]
  - INCORRECT DOSE ADMINISTERED [None]
